FAERS Safety Report 9846767 (Version 1)
Quarter: 2013Q4

REPORT INFORMATION
  Report Type: Spontaneous
  Country: US (occurrence: None)
  Receive Date: 20131219
  Receipt Date: 20131219
  Transmission Date: 20140711
  Serious: Yes (Death)
  Sender: FDA-Public Use
  Company Number: 163-20785-13034293

PATIENT
  Age: 81 Year
  Sex: Male

DRUGS (4)
  1. THALOMID (THALIDOMIDE) (200 MILLIGRAM, CAPSULES) [Suspect]
     Indication: PLASMA CELL MYELOMA
     Dosage: 200 MG , 1 IN  1 D, PO 05/2010 - UNKNOWN THERAPY DATES
     Route: 048
     Dates: start: 201005
  2. COREG (CARVEDILOL) [Concomitant]
  3. DIGOXIN (DIGOXIN) [Concomitant]
  4. LASIX (FUROSEMIDE) [Concomitant]

REACTIONS (5)
  - Clostridium difficile colitis [None]
  - Plasma cell myeloma [None]
  - Cardiac failure congestive [None]
  - Weight decreased [None]
  - Fatigue [None]
